FAERS Safety Report 4471195-9 (Version None)
Quarter: 2004Q4

REPORT INFORMATION
  Report Type: 
  Country: None (occurrence: None)
  Receive Date: 20041011
  Receipt Date: 20041004
  Transmission Date: 20050328
  Serious: Yes (Hospitalization)
  Sender: FDA-Public Use
  Company Number: AU-MERCK-0410AUS00037

PATIENT
  Age: 69 Year
  Sex: Female

DRUGS (9)
  1. CARTIA (ASPIRIN) [Concomitant]
     Route: 065
  2. VALIUM [Concomitant]
     Route: 065
  3. PREMARIN [Concomitant]
     Route: 065
  4. AVAPRO [Concomitant]
     Route: 065
  5. THYROXIN [Concomitant]
     Route: 065
  6. METOPROLOL [Concomitant]
     Route: 065
  7. PRAVACHOL [Concomitant]
     Route: 065
  8. VIOXX [Suspect]
     Indication: OSTEOARTHRITIS
     Route: 048
     Dates: start: 20000101, end: 20041001
  9. EFFEXOR [Concomitant]
     Route: 065

REACTIONS (2)
  - CEREBROVASCULAR ACCIDENT [None]
  - MYOCARDIAL INFARCTION [None]
